FAERS Safety Report 6942587-0 (Version None)
Quarter: 2010Q3

REPORT INFORMATION
  Report Type: 
  Country: None (occurrence: None)
  Receive Date: 20100826
  Receipt Date: 20100819
  Transmission Date: 20110219
  Serious: Yes (Hospitalization)
  Sender: FDA-Public Use
  Company Number: IT-ASTRAZENECA-2010SE39018

PATIENT
  Age: 89 Year
  Sex: Female

DRUGS (5)
  1. SEROQUEL [Suspect]
     Indication: DEMENTIA
     Route: 048
     Dates: start: 20100721, end: 20100804
  2. EUTIROX [Concomitant]
  3. DILATREND [Concomitant]
  4. LANOXIN [Concomitant]
  5. LASIX [Concomitant]

REACTIONS (2)
  - AGRANULOCYTOSIS [None]
  - BRONCHOPNEUMONIA [None]
